FAERS Safety Report 14018931 (Version 1)
Quarter: 2017Q3

REPORT INFORMATION
  Report Type: Spontaneous
  Country: GB (occurrence: GB)
  Receive Date: 20170928
  Receipt Date: 20170928
  Transmission Date: 20171128
  Serious: Yes (Life-Threatening, Other)
  Sender: FDA-Public Use
  Company Number: GB-SUN PHARMACEUTICAL INDUSTRIES LTD-2017RR-150606

PATIENT
  Age: 48 Year
  Sex: Male

DRUGS (5)
  1. GENTAMICIN. [Suspect]
     Active Substance: GENTAMICIN
     Indication: PRODUCT USED FOR UNKNOWN INDICATION
     Dosage: UNK
     Route: 065
     Dates: start: 2015
  2. CIPROFLOXACIN. [Suspect]
     Active Substance: CIPROFLOXACIN
     Indication: PSEUDOMONAS INFECTION
     Dosage: 500 MG, BID
     Route: 065
     Dates: start: 2015
  3. GENTAMICIN. [Suspect]
     Active Substance: GENTAMICIN
     Dosage: 160 MG, TOTAL
     Route: 065
     Dates: start: 2015
  4. GENTAMICIN. [Suspect]
     Active Substance: GENTAMICIN
     Dosage: 240 MG, TOTAL
     Route: 042
     Dates: start: 20150603
  5. CEFUROXIME. [Concomitant]
     Active Substance: CEFUROXIME
     Indication: PRODUCT USED FOR UNKNOWN INDICATION
     Dosage: NOCTE AND MANE
     Route: 042
     Dates: start: 2015

REACTIONS (1)
  - Drug resistance [Unknown]
